FAERS Safety Report 9898494 (Version 1)
Quarter: 2014Q1

REPORT INFORMATION
  Report Type: Spontaneous
  Country: US (occurrence: US)
  Receive Date: 20140214
  Receipt Date: 20140214
  Transmission Date: 20141002
  Serious: No
  Sender: FDA-Public Use
  Company Number: US-GILEAD-2011-0040901

PATIENT
  Sex: Female

DRUGS (2)
  1. LETAIRIS [Suspect]
     Indication: PRODUCT USED FOR UNKNOWN INDICATION
     Route: 048
     Dates: start: 20110607
  2. REVATIO [Concomitant]

REACTIONS (6)
  - Photosensitivity reaction [Unknown]
  - Glare [Unknown]
  - Eye disorder [Unknown]
  - Eye irritation [Unknown]
  - Nasal congestion [Unknown]
  - Swelling [Unknown]
